FAERS Safety Report 8954089 (Version 2)
Quarter: 2013Q1

REPORT INFORMATION
  Report Type: Spontaneous
  Country: ES (occurrence: ES)
  Receive Date: 20121207
  Receipt Date: 20130108
  Transmission Date: 20140127
  Serious: Yes (Death, Hospitalization, Other)
  Sender: FDA-Public Use
  Company Number: PHHY2012ES112159

PATIENT
  Age: 53 Year
  Sex: Male

DRUGS (4)
  1. AFINITOR [Suspect]
     Indication: PANCREATIC CARCINOMA
     Route: 048
     Dates: start: 20110722, end: 20120922
  2. SANDOSTATIN LAR [Suspect]
  3. LANTUS [Concomitant]
  4. NOVONORM [Concomitant]

REACTIONS (3)
  - Hepatorenal failure [Fatal]
  - Hepatitis B [Fatal]
  - Diabetes mellitus [Unknown]
